FAERS Safety Report 24018848 (Version 1)
Quarter: 2024Q2

REPORT INFORMATION
  Report Type: Report from Study
  Country: US (occurrence: US)
  Receive Date: 20240627
  Receipt Date: 20240627
  Transmission Date: 20240716
  Serious: Yes (Hospitalization)
  Sender: FDA-Public Use
  Company Number: US-UCBSA-2024014781

PATIENT
  Sex: Female

DRUGS (4)
  1. ROZANOLIXIZUMAB [Suspect]
     Active Substance: ROZANOLIXIZUMAB
     Indication: Myasthenia gravis
     Dosage: 560 MILLIGRAM, WEEKLY (QW)
     Route: 058
     Dates: start: 20240229
  2. ROZANOLIXIZUMAB [Suspect]
     Active Substance: ROZANOLIXIZUMAB
     Dosage: 560 MILLIGRAM (4ML), WEEKLY (QW) FOR 6 WEEKS
     Route: 058
     Dates: start: 20240305, end: 20240409
  3. ROZANOLIXIZUMAB [Suspect]
     Active Substance: ROZANOLIXIZUMAB
     Dosage: 560 MILLIGRAM (4ML), WEEKLY (QW) FOR 6 WEEKS, VIAL
     Route: 058
     Dates: start: 20240516
  4. ROZANOLIXIZUMAB [Suspect]
     Active Substance: ROZANOLIXIZUMAB
     Dosage: 560 MILLIGRAM (4ML), WEEKLY (QW) FOR 6 WEEKS, VIAL
     Route: 058
     Dates: start: 20240529, end: 20240529

REACTIONS (23)
  - Dyspnoea [Not Recovered/Not Resolved]
  - Nausea [Recovering/Resolving]
  - Abdominal discomfort [Not Recovered/Not Resolved]
  - Skin lesion [Recovering/Resolving]
  - Skin haemorrhage [Recovering/Resolving]
  - Asthenia [Not Recovered/Not Resolved]
  - Fatigue [Recovering/Resolving]
  - Respiratory disorder [Not Recovered/Not Resolved]
  - Feeling abnormal [Not Recovered/Not Resolved]
  - Rash macular [Not Recovered/Not Resolved]
  - Erythema [Recovering/Resolving]
  - Urinary tract infection [Recovering/Resolving]
  - Depression [Recovering/Resolving]
  - Muscular weakness [Not Recovered/Not Resolved]
  - Hypersomnia [Recovering/Resolving]
  - Somnolence [Recovering/Resolving]
  - Tongue blistering [Not Recovered/Not Resolved]
  - Dyspepsia [Recovering/Resolving]
  - Contusion [Recovering/Resolving]
  - General physical health deterioration [Not Recovered/Not Resolved]
  - Vomiting [Recovering/Resolving]
  - Blister [Recovering/Resolving]
  - Drug ineffective [Unknown]

NARRATIVE: CASE EVENT DATE: 20240101
